FAERS Safety Report 13099674 (Version 1)
Quarter: 2017Q1

REPORT INFORMATION
  Report Type: Report from Study
  Country: GB (occurrence: GB)
  Receive Date: 20170110
  Receipt Date: 20170110
  Transmission Date: 20170428
  Serious: Yes (Death)
  Sender: FDA-Public Use
  Company Number: GB-CIPLA LTD.-2016GB24598

PATIENT

DRUGS (2)
  1. FULVESTRANT PLACEBO [Suspect]
     Active Substance: FULVESTRANT
     Indication: BREAST CANCER
     Dosage: UNK, ON DAYS 0, 14, 28, AND EVERY 28 DAYS THEREAFTER
     Route: 030
  2. ANASTROZOLE. [Suspect]
     Active Substance: ANASTROZOLE
     Indication: BREAST CANCER
     Dosage: 1 MG, QD AS A SINGLE TABLET
     Route: 048

REACTIONS (1)
  - Death [Fatal]
